FAERS Safety Report 9742615 (Version 2)
Quarter: 2015Q3

REPORT INFORMATION
  Report Type: Spontaneous
  Country: US (occurrence: US)
  Receive Date: 20131210
  Receipt Date: 20150804
  Transmission Date: 20151125
  Serious: No
  Sender: FDA-Public Use
  Company Number: US-GILEAD-2009-0024763

PATIENT
  Age: 56 Year
  Sex: Male

DRUGS (12)
  1. ZOLPIDEM [Concomitant]
     Active Substance: ZOLPIDEM\ZOLPIDEM TARTRATE
  2. DILANTIN [Concomitant]
     Active Substance: PHENYTOIN
  3. CALCIUM [Concomitant]
     Active Substance: CALCIUM
  4. PROGRAF [Concomitant]
     Active Substance: TACROLIMUS\TACROLIMUS ANHYDROUS
  5. ATIVAN [Concomitant]
     Active Substance: LORAZEPAM
  6. CELLCEPT [Concomitant]
     Active Substance: MYCOPHENOLATE MOFETIL\MYCOPHENOLATE MOFETIL HYDROCHLORIDE
  7. FLOLAN [Concomitant]
     Active Substance: EPOPROSTENOL SODIUM
  8. LETAIRIS [Suspect]
     Active Substance: AMBRISENTAN
     Indication: PULMONARY ARTERIAL HYPERTENSION
     Route: 048
     Dates: start: 20081029
  9. PREDNISOLONE. [Concomitant]
     Active Substance: PREDNISOLONE
  10. OXYCODONE [Concomitant]
     Active Substance: OXYCODONE
  11. FUROSEMIDE. [Concomitant]
     Active Substance: FUROSEMIDE
  12. ALBUTEROL. [Concomitant]
     Active Substance: ALBUTEROL

REACTIONS (2)
  - Respiratory tract congestion [Not Recovered/Not Resolved]
  - Wheezing [Not Recovered/Not Resolved]
